FAERS Safety Report 11605432 (Version 7)
Quarter: 2018Q4

REPORT INFORMATION
  Report Type: Spontaneous
  Country: US (occurrence: US)
  Receive Date: 20151007
  Receipt Date: 20181114
  Transmission Date: 20190204
  Serious: Yes (Other)
  Sender: FDA-Public Use
  Company Number: US-SA-2015SA153352

PATIENT
  Age: 54 Year
  Sex: Male
  Weight: 107.95 kg

DRUGS (10)
  1. PRALUENT [Suspect]
     Active Substance: ALIROCUMAB
     Dosage: 150 MG, QOW
     Route: 058
     Dates: start: 20151103
  2. ACETYLSALICYLIC ACID [Concomitant]
     Active Substance: ASPIRIN
     Dosage: 81 MG,UNK
     Route: 065
  3. LOSARTAN. [Concomitant]
     Active Substance: LOSARTAN
     Indication: BLOOD PRESSURE MEASUREMENT
     Dosage: 75 MG,UNK
     Route: 065
     Dates: start: 20150901
  4. VITAMINS NOS [Concomitant]
     Active Substance: VITAMINS
     Dosage: UNK UNK,UNK
     Route: 065
  5. PLAVIX [Concomitant]
     Active Substance: CLOPIDOGREL BISULFATE
     Dosage: UNK UNK,UNK
     Route: 065
  6. PRALUENT [Suspect]
     Active Substance: ALIROCUMAB
     Dosage: 150 MG,QOW
     Route: 058
  7. IBUPROFEN. [Concomitant]
     Active Substance: IBUPROFEN
     Indication: ARTHRALGIA
     Dosage: UNK UNK,PRN
     Route: 065
  8. GLUCOSAMINE [Concomitant]
     Active Substance: GLUCOSAMINE
     Indication: ARTHRALGIA
     Dosage: 1500 MG,UNK
     Route: 065
  9. PRALUENT [Suspect]
     Active Substance: ALIROCUMAB
     Indication: TYPE IIA HYPERLIPIDAEMIA
     Dosage: 75 MG,QOW
     Route: 058
     Dates: start: 20150901
  10. NIACIN. [Concomitant]
     Active Substance: NIACIN
     Indication: BLOOD CHOLESTEROL INCREASED
     Dosage: 500 MG,UNK
     Route: 065

REACTIONS (7)
  - Ventricular flutter [Not Recovered/Not Resolved]
  - Myalgia [Unknown]
  - Cardiac disorder [Unknown]
  - Influenza [Unknown]
  - Cardiac failure [Not Recovered/Not Resolved]
  - Cough [Not Recovered/Not Resolved]
  - Ejection fraction decreased [Not Recovered/Not Resolved]

NARRATIVE: CASE EVENT DATE: 2015
